FAERS Safety Report 8573171-3 (Version None)
Quarter: 2012Q3

REPORT INFORMATION
  Report Type: 
  Country: None (occurrence: None)
  Receive Date: 20120806
  Receipt Date: 20120730
  Transmission Date: 20120928
  Serious: Yes (Life-Threatening)
  Sender: FDA-Public Use
  Company Number: GB-PFIZER INC-2012189202

PATIENT
  Age: 72 Year
  Sex: Female

DRUGS (6)
  1. ATENOLOL [Suspect]
     Dosage: 25 MG, DAILY
     Route: 048
  2. ATORVASTATIN [Concomitant]
     Dosage: 10 MG, DAILY
     Route: 048
  3. PERINDOPRIL [Concomitant]
     Dosage: 8 MG, DAILY
     Route: 048
  4. ADCAL-D3 [Concomitant]
     Dosage: 1 DF, 2X/DAY
     Route: 048
  5. ADCAL-D3 [Concomitant]
     Dosage: 1 DF, 1X/DAY
  6. DILTIAZEM HYDROCHLORIDE [Suspect]
     Dosage: 300 MG, DAILY
     Route: 048

REACTIONS (4)
  - CIRCULATORY COLLAPSE [None]
  - CARDIAC ARREST [None]
  - ATRIOVENTRICULAR BLOCK COMPLETE [None]
  - SYNCOPE [None]
